FAERS Safety Report 21229711 (Version 1)
Quarter: 2022Q3

REPORT INFORMATION
  Report Type: Spontaneous
  Country: US (occurrence: None)
  Receive Date: 20220818
  Receipt Date: 20220818
  Transmission Date: 20221027
  Serious: No
  Sender: FDA-Public Use
  Company Number: None

PATIENT
  Age: 70 Year
  Sex: Female
  Weight: 59.4 kg

DRUGS (1)
  1. PAXLOVID [Suspect]
     Active Substance: NIRMATRELVIR\RITONAVIR
     Indication: COVID-19
     Dosage: FREQUENCY : TWICE A DAY;?
     Route: 002
     Dates: start: 20220810, end: 20220815

REACTIONS (6)
  - Nausea [None]
  - Vomiting [None]
  - Headache [None]
  - Myalgia [None]
  - Dry mouth [None]
  - Dysgeusia [None]
